FAERS Safety Report 4648446-0 (Version None)
Quarter: 2005Q2

REPORT INFORMATION
  Report Type: 
  Country: None (occurrence: None)
  Receive Date: 20050427
  Receipt Date: 20050407
  Transmission Date: 20051028
  Serious: Yes (Other)
  Sender: FDA-Public Use
  Company Number: DE_041114658

PATIENT
  Age: 71 Year
  Sex: Female

DRUGS (2)
  1. ZYPREXA [Suspect]
     Dosage: 15 MG DAY
  2. LEVOTHYROXINE SODIUM [Concomitant]

REACTIONS (4)
  - ATRIOVENTRICULAR BLOCK [None]
  - BRADYCARDIA [None]
  - DYSPNOEA [None]
  - REFUSAL OF TREATMENT BY PATIENT [None]
